FAERS Safety Report 4880905-8 (Version None)
Quarter: 2005Q4

REPORT INFORMATION
  Report Type: 
  Country: None (occurrence: None)
  Receive Date: 20051223
  Receipt Date: 20051103
  Transmission Date: 20060501
  Serious: No
  Sender: FDA-Public Use
  Company Number: 05P-163-0316327-00

PATIENT
  Age: 49 Year
  Sex: Female
  Weight: 53.5244 kg

DRUGS (3)
  1. HUMIRA [Suspect]
     Indication: CROHN'S DISEASE
     Dosage: 40 MG, 1 IN 2 WK, SUBCUTANEOUS
     Route: 058
     Dates: start: 20050901, end: 20051001
  2. COLESTYRAMINE [Concomitant]
  3. AZATHIOPRINE [Concomitant]

REACTIONS (1)
  - LYMPH GLAND INFECTION [None]
